FAERS Safety Report 9432129 (Version 2)
Quarter: 2013Q4

REPORT INFORMATION
  Report Type: Spontaneous
  Country: GB (occurrence: None)
  Receive Date: 20130726
  Receipt Date: 20131114
  Transmission Date: 20140711
  Serious: Yes (Disabling)
  Sender: FDA-Public Use
  Company Number: AUR-APL-2013-06134

PATIENT
  Age: 66 Year
  Sex: Female
  Weight: 87.08 kg

DRUGS (11)
  1. MIRTAZAPINE [Suspect]
     Indication: DEPRESSION
     Route: 048
     Dates: start: 20130627, end: 20130628
  2. ADCAL D3 (LEKOVIT CA) [Concomitant]
  3. AMLODIPINE (AMLODIPINE) [Concomitant]
  4. LEVOTHYROXINE (LEVOTHYROXINE) [Concomitant]
  5. HYDROCHLOROTHIAZIDE W/LOSARTAN (HYDROCHLOROTHIAZIDE W/LOSARTAN) [Concomitant]
  6. PARACETAMOL (PARACETAMOL) [Concomitant]
  7. PREDNISOLONE (PREDNISOLONE) [Concomitant]
  8. SALBUTAMOL (SALBUTAMOL) [Concomitant]
  9. TIOTROPIUM BROMIDE (TIOTROPIUM BROMIDE) [Concomitant]
  10. TOLTERODINE (TOLTERODINE) [Concomitant]
  11. WARFARIN (WARFARIN) [Concomitant]

REACTIONS (4)
  - Dysarthria [None]
  - Speech disorder [None]
  - Dizziness [None]
  - Cough [None]
